FAERS Safety Report 17149838 (Version 1)
Quarter: 2019Q4

REPORT INFORMATION
  Report Type: Spontaneous
  Country: CA (occurrence: CA)
  Receive Date: 20191213
  Receipt Date: 20191213
  Transmission Date: 20200122
  Serious: Yes (Death)
  Sender: FDA-Public Use
  Company Number: CA-ASTRAZENECA-2019SF79438

PATIENT
  Age: 63 Year
  Sex: Female

DRUGS (6)
  1. AFINITOR [Concomitant]
     Active Substance: EVEROLIMUS
  2. FASLODEX [Suspect]
     Active Substance: FULVESTRANT
     Indication: PRODUCT USED FOR UNKNOWN INDICATION
     Dosage: CYCLICAL
     Route: 030
  3. DEXAMETHASONE. [Concomitant]
     Active Substance: DEXAMETHASONE
  4. IBRANCE [Suspect]
     Active Substance: PALBOCICLIB
     Indication: BREAST CANCER METASTATIC
     Dosage: CYCLICAL
     Route: 048
  5. EXEMESTANE. [Concomitant]
     Active Substance: EXEMESTANE
  6. CESAMET [Concomitant]
     Active Substance: NABILONE

REACTIONS (6)
  - Abdominal pain [Fatal]
  - Decreased appetite [Fatal]
  - Nausea [Fatal]
  - Death [Fatal]
  - Abdominal distension [Fatal]
  - Gastrointestinal pain [Fatal]
